FAERS Safety Report 10686043 (Version 1)
Quarter: 2014Q4

REPORT INFORMATION
  Report Type: Spontaneous
  Country: PT (occurrence: PT)
  Receive Date: 20141231
  Receipt Date: 20141231
  Transmission Date: 20150529
  Serious: Yes (Other)
  Sender: FDA-Public Use
  Company Number: PHHY2014PT169463

PATIENT
  Age: 84 Year
  Sex: Female
  Weight: 73 kg

DRUGS (6)
  1. ESOMEPRAZOL//ESOMEPRAZOLE [Concomitant]
     Indication: PROPHYLAXIS AGAINST GASTROINTESTINAL ULCER
     Dosage: 40 MG, QD
     Route: 048
  2. ULTIBRO BREEZHALER [Suspect]
     Active Substance: GLYCOPYRRONIUM\INDACATEROL
     Indication: ASTHMA PROPHYLAXIS
     Dosage: 1 DF, QD
     Route: 055
     Dates: start: 20141103, end: 20141203
  3. SINGULAIR [Concomitant]
     Active Substance: MONTELUKAST SODIUM
     Indication: ASTHMA
     Dosage: 10 MG, QD
     Route: 048
  4. FILOTEMPO [Concomitant]
     Indication: ASTHMA
     Dosage: 250 MG, QD
     Route: 048
  5. GLUCOSAMIN//GLUCOSAMINE SULFATE POTASSIUM CHLORIDE [Concomitant]
     Indication: OSTEOARTHRITIS
     Dosage: 1500 MG, QD
     Route: 048
  6. LORENIN [Concomitant]
     Active Substance: LORAZEPAM
     Indication: INSOMNIA
     Dosage: 2.5 MG, QD
     Route: 048

REACTIONS (6)
  - Tongue oedema [Recovered/Resolved]
  - Chest pain [Recovered/Resolved]
  - Sneezing [Recovered/Resolved]
  - Cough [Recovered/Resolved]
  - Lip oedema [Recovered/Resolved]
  - Headache [Recovered/Resolved]

NARRATIVE: CASE EVENT DATE: 201411
